FAERS Safety Report 17659771 (Version 2)
Quarter: 2020Q2

REPORT INFORMATION
  Report Type: Spontaneous
  Country: US (occurrence: US)
  Receive Date: 20200413
  Receipt Date: 20200413
  Transmission Date: 20200713
  Serious: Yes (Hospitalization, Other)
  Sender: FDA-Public Use
  Company Number: US-JNJFOC-20200404090

PATIENT
  Age: 27 Year
  Sex: Female

DRUGS (1)
  1. IMODIUM [Suspect]
     Active Substance: LOPERAMIDE HYDROCHLORIDE
     Indication: PRODUCT USED FOR UNKNOWN INDICATION
     Dosage: OVERDOSE,LOPERAMIDE: 2MG;
     Route: 065

REACTIONS (6)
  - Overdose [Recovering/Resolving]
  - Drug abuse [Recovering/Resolving]
  - Electrocardiogram T wave inversion [Recovering/Resolving]
  - Electrocardiogram QT prolonged [Recovering/Resolving]
  - Torsade de pointes [Recovering/Resolving]
  - Ventricular tachycardia [Recovering/Resolving]
